FAERS Safety Report 9866839 (Version 1)
Quarter: 2014Q1

REPORT INFORMATION
  Report Type: Spontaneous
  Country: US (occurrence: None)
  Receive Date: 20140203
  Receipt Date: 20140203
  Transmission Date: 20141002
  Serious: No
  Sender: FDA-Public Use
  Company Number: None

PATIENT
  Age: 7 Year
  Sex: Male
  Weight: 23.13 kg

DRUGS (1)
  1. TAMIFLU [Suspect]
     Indication: INFLUENZA
     Dosage: TAKEN BY MOUTH
     Dates: start: 20140126, end: 20140127

REACTIONS (3)
  - Pruritus [None]
  - Rash pruritic [None]
  - No therapeutic response [None]
